FAERS Safety Report 19190696 (Version 2)
Quarter: 2021Q2

REPORT INFORMATION
  Report Type: Spontaneous
  Country: US (occurrence: US)
  Receive Date: 20210428
  Receipt Date: 20210623
  Transmission Date: 20210717
  Serious: Yes (Other)
  Sender: FDA-Public Use
  Company Number: US-AMGEN-USASP2021061946

PATIENT
  Age: 65 Year
  Sex: Female

DRUGS (2)
  1. PROLIA [Suspect]
     Active Substance: DENOSUMAB
     Indication: OSTEOPOROSIS
     Dosage: UNK
     Route: 065
  2. PROLIA [Suspect]
     Active Substance: DENOSUMAB
     Indication: BREAST CONSERVING SURGERY

REACTIONS (5)
  - Post procedural haematoma [Unknown]
  - Postoperative wound complication [Unknown]
  - Breast conserving surgery [Unknown]
  - Seroma [Unknown]
  - Coagulopathy [Unknown]

NARRATIVE: CASE EVENT DATE: 202002
